FAERS Safety Report 8318861-2 (Version None)
Quarter: 2012Q2

REPORT INFORMATION
  Report Type: 
  Country: None (occurrence: None)
  Receive Date: 20120427
  Receipt Date: 20120420
  Transmission Date: 20120825
  Serious: Yes (Hospitalization)
  Sender: FDA-Public Use
  Company Number: AU-B.I. PHARMACEUTICALS,INC./RIDGEFIELD-2012-AU-00785AU

PATIENT
  Sex: Male

DRUGS (9)
  1. PRADAXA [Suspect]
     Indication: ATRIAL FIBRILLATION
  2. FUROSEMIDE [Concomitant]
  3. PANTOPRAZOLE [Concomitant]
  4. RAMIPRIL [Concomitant]
  5. DIGOXIN [Concomitant]
     Dosage: 125 MCG
  6. PRADAXA [Suspect]
     Indication: CEREBROVASCULAR ACCIDENT PROPHYLAXIS
  7. CARVEDILOL [Concomitant]
     Dosage: 25 MG
  8. AMIODARONE HCL [Concomitant]
  9. SPIRONOLACTONE [Concomitant]

REACTIONS (5)
  - HEPATIC FUNCTION ABNORMAL [None]
  - VENTRICULAR TACHYCARDIA [None]
  - RENAL IMPAIRMENT [None]
  - CHEST PAIN [None]
  - PALPITATIONS [None]
